FAERS Safety Report 4692647-2 (Version None)
Quarter: 2005Q2

REPORT INFORMATION
  Report Type: 
  Country: None (occurrence: None)
  Receive Date: 20050617
  Receipt Date: 20050608
  Transmission Date: 20051028
  Serious: Yes (Hospitalization)
  Sender: FDA-Public Use
  Company Number: PHEH2005US06482

PATIENT
  Age: 25 Year
  Sex: Female

DRUGS (3)
  1. TRILEPTAL [Suspect]
     Dosage: 150 MG, TID
     Route: 048
     Dates: start: 20050401
  2. TRILEPTAL [Suspect]
     Dosage: 150 MG, QID
     Route: 048
  3. PROVIGIL [Concomitant]
     Dosage: 50 MG, QD
     Route: 048
     Dates: end: 20050601

REACTIONS (1)
  - SUICIDAL IDEATION [None]
